FAERS Safety Report 4482338-5 (Version None)
Quarter: 2004Q4

REPORT INFORMATION
  Report Type: 
  Country: None (occurrence: None)
  Receive Date: 20041022
  Receipt Date: 20040722
  Transmission Date: 20050328
  Serious: Yes (Hospitalization)
  Sender: FDA-Public Use
  Company Number: US-ROCHE-375350

PATIENT
  Age: 46 Year
  Sex: Male
  Weight: 77.1 kg

DRUGS (7)
  1. FUZEON [Suspect]
     Indication: DRUG USE FOR UNKNOWN INDICATION
     Route: 065
     Dates: start: 20040606
  2. FUZEON [Suspect]
     Route: 065
     Dates: end: 20040802
  3. VIREAD [Concomitant]
     Route: 048
     Dates: start: 20030415
  4. VIDEX EC [Concomitant]
     Route: 048
     Dates: start: 20001115
  5. EPIVIR [Concomitant]
     Route: 048
     Dates: start: 19970615
  6. REYATAZ [Concomitant]
     Route: 048
     Dates: start: 20030715
  7. NORVIR [Concomitant]
     Route: 048
     Dates: start: 20040315

REACTIONS (5)
  - INJECTION SITE DISCOMFORT [None]
  - INJECTION SITE PAIN [None]
  - INJECTION SITE REACTION [None]
  - NEPHROLITHIASIS [None]
  - ULCER [None]
